FAERS Safety Report 7655523-9 (Version None)
Quarter: 2011Q3

REPORT INFORMATION
  Report Type: 
  Country: None (occurrence: None)
  Receive Date: 20110804
  Receipt Date: 20110801
  Transmission Date: 20111222
  Serious: Yes (Hospitalization)
  Sender: FDA-Public Use
  Company Number: FR-BRISTOL-MYERS SQUIBB COMPANY-15941370

PATIENT
  Age: 63 Year
  Sex: Male

DRUGS (1)
  1. IRBESARTAN AND HYDROCHLOROTHIAZIDE [Suspect]
     Indication: HYPERTENSION
     Route: 048
     Dates: start: 20091101, end: 20110101

REACTIONS (5)
  - ANAEMIA [None]
  - TRANSAMINASES INCREASED [None]
  - ASTHENIA [None]
  - NEUTROPENIA [None]
  - LEUKOPENIA [None]
